FAERS Safety Report 6519791-9 (Version None)
Quarter: 2009Q4

REPORT INFORMATION
  Report Type: 
  Country: None (occurrence: None)
  Receive Date: 20091228
  Receipt Date: 20091228
  Transmission Date: 20100525
  Serious: Yes (Hospitalization)
  Sender: FDA-Public Use
  Company Number: None

PATIENT
  Age: 49 Year
  Sex: Male

DRUGS (1)
  1. ANCEF [Suspect]
     Dosage: 2 GRAMS UNKNOWN UNK
     Route: 065

REACTIONS (4)
  - AIRWAY PEAK PRESSURE INCREASED [None]
  - COUGH [None]
  - URTICARIA [None]
  - WHEEZING [None]
